FAERS Safety Report 13208527 (Version 1)
Quarter: 2017Q1

REPORT INFORMATION
  Report Type: Spontaneous
  Country: US (occurrence: US)
  Receive Date: 20170209
  Receipt Date: 20170209
  Transmission Date: 20170428
  Serious: Yes (Hospitalization)
  Sender: FDA-Public Use
  Company Number: US-TEVA-736977USA

PATIENT
  Age: 59 Year
  Sex: Female

DRUGS (7)
  1. CARBAMAZEPIN [Concomitant]
     Active Substance: CARBAMAZEPINE
  2. CIPRO [Concomitant]
     Active Substance: CIPROFLOXACIN HYDROCHLORIDE
  3. COPAXONE [Suspect]
     Active Substance: GLATIRAMER ACETATE
     Indication: MULTIPLE SCLEROSIS
     Route: 058
     Dates: start: 201601
  4. TAMSULOSIN [Concomitant]
     Active Substance: TAMSULOSIN
  5. NORCO [Concomitant]
     Active Substance: ACETAMINOPHEN\HYDROCODONE BITARTRATE
  6. GABAPENTIN. [Concomitant]
     Active Substance: GABAPENTIN
  7. NADOLOL. [Concomitant]
     Active Substance: NADOLOL

REACTIONS (1)
  - Spinal cord operation [Unknown]

NARRATIVE: CASE EVENT DATE: 20170125
